FAERS Safety Report 18596174 (Version 3)
Quarter: 2021Q1

REPORT INFORMATION
  Report Type: Report from Study
  Country: IT (occurrence: IT)
  Receive Date: 20201209
  Receipt Date: 20210124
  Transmission Date: 20210419
  Serious: Yes (Hospitalization, Other)
  Sender: FDA-Public Use
  Company Number: IT-UCBSA-2020045784

PATIENT
  Age: 59 Year
  Sex: Female
  Weight: 70 kg

DRUGS (1)
  1. LACOSAMIDE. [Suspect]
     Active Substance: LACOSAMIDE
     Indication: PRODUCT USED FOR UNKNOWN INDICATION
     Dosage: 100MG 1 AND HALF TABLET IN THE MORNING
     Dates: start: 202009

REACTIONS (4)
  - Loss of consciousness [Unknown]
  - Seizure [Unknown]
  - Head injury [Unknown]
  - Product use issue [Unknown]

NARRATIVE: CASE EVENT DATE: 20201106
